FAERS Safety Report 5263012-4 (Version None)
Quarter: 2007Q1

REPORT INFORMATION
  Report Type: 
  Country: None (occurrence: None)
  Receive Date: 20070308
  Receipt Date: 20070306
  Transmission Date: 20070707
  Serious: Yes (Death, Hospitalization, Other)
  Sender: FDA-Public Use
  Company Number: THQ2007A00001

PATIENT
  Age: 85 Year
  Sex: Male

DRUGS (5)
  1. LUCRIN TRI-DEPOT (LEUPROLIDE ACETATE) (INJECTION) [Suspect]
     Indication: PROSTATE CANCER
     Dosage: 11.25 MG (11.25 MG, 1 IN 3M) INJECTION
     Dates: start: 20060905
  2. ZOLEDRONIC ACID [Concomitant]
  3. CALCIUM [Concomitant]
  4. ERGOCALCIFEROL [Concomitant]
  5. BICALUTAMIDE [Concomitant]

REACTIONS (13)
  - AGITATION [None]
  - ALANINE AMINOTRANSFERASE INCREASED [None]
  - ASPARTATE AMINOTRANSFERASE INCREASED [None]
  - ATRIOVENTRICULAR BLOCK COMPLETE [None]
  - BLOOD LACTATE DEHYDROGENASE INCREASED [None]
  - CARDIAC ARREST [None]
  - CARDIOGENIC SHOCK [None]
  - COUGH [None]
  - DYSKINESIA [None]
  - DYSPNOEA [None]
  - FIBRIN D DIMER INCREASED [None]
  - HYPOXIA [None]
  - SPUTUM DISCOLOURED [None]
